FAERS Safety Report 13466556 (Version 1)
Quarter: 2017Q2

REPORT INFORMATION
  Report Type: Spontaneous
  Country: US (occurrence: US)
  Receive Date: 20170420
  Receipt Date: 20170420
  Transmission Date: 20170830
  Serious: No
  Sender: FDA-Public Use
  Company Number: None

PATIENT
  Age: 76 Year
  Sex: Female

DRUGS (1)
  1. HUMIRA [Suspect]
     Active Substance: ADALIMUMAB
     Indication: MALAISE
     Dosage: 40MG 80MG DAY 1  40MG DAY 8 40MG EVERY OTHER WEEK ?SUBCUTANEOUSLY
     Route: 058
     Dates: start: 20170307

REACTIONS (3)
  - Muscular weakness [None]
  - Headache [None]
  - Abdominal discomfort [None]

NARRATIVE: CASE EVENT DATE: 20170327
